FAERS Safety Report 10037259 (Version 2)
Quarter: 2014Q4

REPORT INFORMATION
  Report Type: Spontaneous
  Country: US (occurrence: US)
  Receive Date: 20140326
  Receipt Date: 20141201
  Transmission Date: 20150528
  Serious: Yes (Hospitalization)
  Sender: FDA-Public Use
  Company Number: US-BAYER-2014-045807

PATIENT
  Age: 25 Year
  Sex: Female
  Weight: 61.22 kg

DRUGS (5)
  1. LEVETIRACETAM. [Concomitant]
     Active Substance: LEVETIRACETAM
  2. YAZ [Suspect]
     Active Substance: DROSPIRENONE\ETHINYL ESTRADIOL
     Indication: ACNE
     Dosage: UNK
     Route: 048
     Dates: start: 200802, end: 200810
  3. VICODIN [Concomitant]
     Active Substance: ACETAMINOPHEN\HYDROCODONE BITARTRATE
     Indication: PAIN
  4. KEPPRA [Concomitant]
     Active Substance: LEVETIRACETAM
  5. DECADRON [Concomitant]
     Active Substance: DEXAMETHASONE
     Indication: BRAIN OEDEMA

REACTIONS (4)
  - Pain [None]
  - Cerebral haemorrhage [None]
  - Cerebrovascular accident [None]
  - Injury [None]

NARRATIVE: CASE EVENT DATE: 20081024
